FAERS Safety Report 6027233-5 (Version None)
Quarter: 2009Q1

REPORT INFORMATION
  Report Type: 
  Country: None (occurrence: None)
  Receive Date: 20090105
  Receipt Date: 20081223
  Transmission Date: 20090719
  Serious: Yes (Hospitalization)
  Sender: FDA-Public Use
  Company Number: US-ELI_LILLY_AND_COMPANY-US200809003879

PATIENT
  Age: 40 Year
  Sex: Female

DRUGS (7)
  1. BYETTA [Suspect]
     Indication: TYPE 2 DIABETES MELLITUS
     Dosage: 5 UG, 2/D
     Route: 058
     Dates: start: 20080501, end: 20080601
  2. BYETTA [Suspect]
     Dosage: 10 UG, 2/D
     Route: 058
     Dates: start: 20080601, end: 20080101
  3. METFORMIN [Concomitant]
     Dosage: UNK, UNKNOWN
     Route: 065
  4. INSULIN [Concomitant]
     Dosage: UNK, UNKNOWN
     Route: 065
  5. PRAVACHOL [Concomitant]
     Dosage: UNK, UNKNOWN
     Route: 065
  6. TRICOR [Concomitant]
     Dosage: UNK, UNKNOWN
     Route: 065
  7. LISINOPRIL [Concomitant]
     Dosage: UNK, UNKNOWN
     Route: 065

REACTIONS (1)
  - PANCREATITIS [None]
